APPROVED DRUG PRODUCT: ROBENGATOPE
Active Ingredient: ROSE BENGAL SODIUM I-131
Strength: 1mCi/VIAL
Dosage Form/Route: INJECTABLE;INJECTION
Application: N016224 | Product #002
Applicant: BRACCO DIAGNOSTICS INC
Approved: Approved Prior to Jan 1, 1982 | RLD: No | RS: No | Type: DISCN